FAERS Safety Report 15464178 (Version 1)
Quarter: 2018Q4

REPORT INFORMATION
  Report Type: Spontaneous
  Country: BR (occurrence: BR)
  Receive Date: 20181004
  Receipt Date: 20181004
  Transmission Date: 20190204
  Serious: Yes (Other)
  Sender: FDA-Public Use
  Company Number: BR-JNJFOC-20180934398

PATIENT
  Sex: Female

DRUGS (1)
  1. STELARA [Suspect]
     Active Substance: USTEKINUMAB
     Indication: PSORIASIS
     Route: 058
     Dates: start: 201801

REACTIONS (4)
  - Sinusitis [Unknown]
  - Pneumonia [Unknown]
  - Cellulitis [Unknown]
  - Arthritis [Unknown]

NARRATIVE: CASE EVENT DATE: 2018
